FAERS Safety Report 12760287 (Version 4)
Quarter: 2016Q4

REPORT INFORMATION
  Report Type: Report from Study
  Country: None (occurrence: IL)
  Receive Date: 20160919
  Receipt Date: 20161204
  Transmission Date: 20170207
  Serious: Yes (Hospitalization, Other)
  Sender: FDA-Public Use
  Company Number: IL-ABBVIE-16K-082-1725051-00

PATIENT
  Age: 57 Year
  Sex: Male

DRUGS (1)
  1. HUMIRA [Suspect]
     Active Substance: ADALIMUMAB
     Indication: AXIAL SPONDYLOARTHRITIS
     Route: 058
     Dates: start: 20151110, end: 2016

REACTIONS (5)
  - Coronary artery disease [Unknown]
  - Angina pectoris [Unknown]
  - Feeling abnormal [Unknown]
  - Coronary artery occlusion [Unknown]
  - Ischaemia [Unknown]

NARRATIVE: CASE EVENT DATE: 20160907
